FAERS Safety Report 18586824 (Version 1)
Quarter: 2020Q4

REPORT INFORMATION
  Report Type: Spontaneous
  Country: US (occurrence: US)
  Receive Date: 20201207
  Receipt Date: 20201207
  Transmission Date: 20210114
  Serious: Yes (Hospitalization, Other)
  Sender: FDA-Public Use
  Company Number: None

PATIENT
  Age: 73 Year
  Sex: Male
  Weight: 70.45 kg

DRUGS (6)
  1. MERREM [Concomitant]
     Active Substance: MEROPENEM
     Dates: start: 20201203
  2. REMDESIVIR. [Suspect]
     Active Substance: REMDESIVIR
     Indication: COVID-19 PNEUMONIA
     Dosage: 200 MG DAY 1 THEN 100 MG DAY 2-5
     Route: 042
     Dates: start: 20201116, end: 20201120
  3. VANCOMYCIN [Concomitant]
     Active Substance: VANCOMYCIN
     Dates: start: 20201203
  4. DOXYCYCLINE. [Concomitant]
     Active Substance: DOXYCYCLINE
     Dates: start: 20201116, end: 20201125
  5. AMIDOARONE [Concomitant]
     Dates: start: 20201203, end: 20201203
  6. LOVENOX [Concomitant]
     Active Substance: ENOXAPARIN SODIUM
     Dates: start: 20201116, end: 20201204

REACTIONS (5)
  - Septic shock [None]
  - Renal tubular necrosis [None]
  - SARS-CoV-2 antibody test positive [None]
  - Ischaemic hepatitis [None]
  - Acute kidney injury [None]
